FAERS Safety Report 7568491-5 (Version None)
Quarter: 2011Q2

REPORT INFORMATION
  Report Type: 
  Country: None (occurrence: None)
  Receive Date: 20110617
  Receipt Date: 20110606
  Transmission Date: 20111010
  Serious: Yes (Other)
  Sender: FDA-Public Use
  Company Number: 2011AP001169

PATIENT
  Age: 89 Year
  Sex: Female

DRUGS (11)
  1. DOCUSATE SODIUM (DOCUSATE SODIUM) [Concomitant]
  2. LOSARTAN POTASSIUM [Concomitant]
  3. OMEPRAZOLE [Concomitant]
  4. CALCIUM CARBONATE [Concomitant]
  5. CITALOPRAM HYDROBROMIDE [Concomitant]
  6. ACETAMINOPHEN [Concomitant]
  7. PRAVASTATIN SODIUM [Concomitant]
  8. ALENDRONATE SODIUM [Suspect]
     Indication: OSTEOPOROSIS
     Dosage: 10 MG, PO
     Route: 048
  9. CHOLECALCIFEROL (COLECALCIFEROL) [Concomitant]
  10. INSULIN DETEMIR (INSULIN DETEMIR) [Concomitant]
  11. FERROUS FUMARATE [Concomitant]

REACTIONS (4)
  - GASTROINTESTINAL MUCOSAL EXFOLIATION [None]
  - OESOPHAGEAL ULCER [None]
  - HYPOTENSION [None]
  - MELAENA [None]
